FAERS Safety Report 11631301 (Version 1)
Quarter: 2015Q4

REPORT INFORMATION
  Report Type: Report from Study
  Country: US (occurrence: US)
  Receive Date: 20151014
  Receipt Date: 20151014
  Transmission Date: 20160304
  Serious: No
  Sender: FDA-Public Use
  Company Number: US-AMGEN-USASL2015105060

PATIENT
  Sex: Male

DRUGS (1)
  1. ENBREL [Suspect]
     Active Substance: ETANERCEPT
     Indication: RHEUMATOID ARTHRITIS
     Dosage: UNK UNK, ONCE A WEEK
     Route: 065
     Dates: start: 2015

REACTIONS (11)
  - Bone pain [Unknown]
  - Device issue [Unknown]
  - Burning sensation [Recovering/Resolving]
  - Gait disturbance [Unknown]
  - Somnolence [Unknown]
  - Hypopnoea [Unknown]
  - Lymph node pain [Recovering/Resolving]
  - Fatigue [Unknown]
  - Blood pressure decreased [Unknown]
  - Pruritus generalised [Unknown]
  - Dyspnoea [Unknown]

NARRATIVE: CASE EVENT DATE: 2015
